FAERS Safety Report 20855449 (Version 2)
Quarter: 2022Q3

REPORT INFORMATION
  Report Type: Spontaneous
  Country: US (occurrence: US)
  Receive Date: 20220520
  Receipt Date: 20220802
  Transmission Date: 20221027
  Serious: No
  Sender: FDA-Public Use
  Company Number: US-BRISTOL-MYERS SQUIBB COMPANY-2022-021464

PATIENT
  Age: 55 Year
  Sex: Female

DRUGS (2)
  1. ORENCIA [Suspect]
     Active Substance: ABATACEPT
     Indication: Rheumatoid arthritis
     Dosage: EXPIRATION DATE:29-FEB-2024
     Route: 058
     Dates: start: 20220331
  2. ORENCIA [Suspect]
     Active Substance: ABATACEPT
     Indication: Systemic lupus erythematosus

REACTIONS (3)
  - Arthralgia [Unknown]
  - Pain [Unknown]
  - Joint swelling [Unknown]

NARRATIVE: CASE EVENT DATE: 20220701
